FAERS Safety Report 4662324-2 (Version None)
Quarter: 2005Q2

REPORT INFORMATION
  Report Type: 
  Country: None (occurrence: None)
  Receive Date: 20050512
  Receipt Date: 20050425
  Transmission Date: 20051028
  Serious: Yes (Hospitalization)
  Sender: FDA-Public Use
  Company Number: US_010667114

PATIENT
  Age: 59 Year
  Sex: Male
  Weight: 105 kg

DRUGS (6)
  1. HUMALOG [Suspect]
     Indication: DIABETES MELLITUS
  2. HUMULIN N [Suspect]
     Indication: DIABETES MELLITUS
  3. HUMALOG [Suspect]
     Indication: DIABETES MELLITUS
     Dosage: 32 U/ DAY
     Dates: start: 20010530
  4. TOPROL-XL [Concomitant]
  5. GLUCOPHAGE [Concomitant]
  6. GLUCOTROL [Concomitant]

REACTIONS (3)
  - BLOOD GLUCOSE INCREASED [None]
  - CARDIAC OPERATION [None]
  - DRUG DISPENSING ERROR [None]
